FAERS Safety Report 7534694-9 (Version None)
Quarter: 2011Q2

REPORT INFORMATION
  Report Type: 
  Country: None (occurrence: None)
  Receive Date: 20110609
  Receipt Date: 20110513
  Transmission Date: 20111010
  Serious: Yes (Hospitalization)
  Sender: FDA-Public Use
  Company Number: PHHY2011US41343

PATIENT
  Sex: Female

DRUGS (12)
  1. VALTURNA [Suspect]
     Dosage: UNK
  2. ASPIRIN [Concomitant]
  3. FISH OIL [Concomitant]
     Dosage: 1000 MG, UNK
  4. CINNAMON [Concomitant]
  5. VITAMIN E [Concomitant]
  6. LISINOPRIL [Concomitant]
  7. NEBULIZER [Concomitant]
  8. ZOLOFT [Concomitant]
  9. CALCIUM D [Concomitant]
  10. DIOVAN HCT [Suspect]
     Dosage: 1 DF, QD
  11. ASCORBIC ACID [Concomitant]
  12. VITAMIN B-12 [Concomitant]

REACTIONS (4)
  - OEDEMA PERIPHERAL [None]
  - OXYGEN CONSUMPTION DECREASED [None]
  - PNEUMONIA [None]
  - HYPERTENSION [None]
